FAERS Safety Report 12354821 (Version 1)
Quarter: 2016Q2

REPORT INFORMATION
  Report Type: Spontaneous
  Country: US (occurrence: None)
  Receive Date: 20160510
  Receipt Date: 20160510
  Transmission Date: 20160815
  Serious: No
  Sender: FDA-Public Use
  Company Number: None

PATIENT
  Age: 10 Year
  Sex: Female
  Weight: 43.09 kg

DRUGS (2)
  1. CHILDREN^S MULTIVITAMIN - FLINTSTONES GUMMIES [Concomitant]
  2. CEPHALEXIN. [Suspect]
     Active Substance: CEPHALEXIN
     Indication: STREPTOCOCCAL INFECTION
     Route: 048
     Dates: start: 20160502, end: 20160508

REACTIONS (1)
  - Rash [None]

NARRATIVE: CASE EVENT DATE: 20160508
